FAERS Safety Report 10235265 (Version 1)
Quarter: 2014Q1

REPORT INFORMATION
  Report Type: Spontaneous
  Country: US (occurrence: None)
  Receive Date: 20140306
  Receipt Date: 20140306
  Transmission Date: 20141002
  Serious: Yes (Hospitalization, Other)
  Sender: FDA-Public Use
  Company Number: 163-21880-13053869

PATIENT
  Age: 74 Year
  Sex: Female
  Weight: 48.99 kg

DRUGS (9)
  1. REVLIMID (LENALIDOMIDE) (10 MILLIGRAM, CAPSULES) [Suspect]
     Indication: MYELODYSPLASTIC SYNDROME
     Route: 048
     Dates: start: 20110927
  2. ALLOPURINOL (ALLOPURINOL) [Concomitant]
  3. CYCLOBENZAPRINE (CYCLOBENZAPRINE) [Concomitant]
  4. DETROL (TOLTERODINR L-TARTRATE) [Concomitant]
  5. ESTROPIPATE (ESTROPIPATE) [Concomitant]
  6. GABAPENTIN (GABAPENTIN) [Concomitant]
  7. TRAZODONE (TRAZODONE) [Concomitant]
  8. TRIAMTERENE (TRIAMTERENE) [Concomitant]
  9. RED BLOOD CELLS (RED BLOOD CELLS) [Concomitant]

REACTIONS (6)
  - Thrombophlebitis superficial [None]
  - Haemoglobin decreased [None]
  - Cardiac failure congestive [None]
  - Platelet disorder [None]
  - Myelodysplastic syndrome [None]
  - Disease progression [None]
